FAERS Safety Report 8510655-8 (Version None)
Quarter: 2012Q3

REPORT INFORMATION
  Report Type: 
  Country: None (occurrence: None)
  Receive Date: 20120716
  Receipt Date: 20120703
  Transmission Date: 20120928
  Serious: No
  Sender: FDA-Public Use
  Company Number: US-009507513-1206USA04980

PATIENT

DRUGS (2)
  1. SINGULAIR [Suspect]
     Indication: COUGH
     Dosage: 10 MG, QD
     Route: 048
     Dates: start: 20120427
  2. ALLERGENIC EXTRACT [Concomitant]
     Dosage: UNK UNK, QW

REACTIONS (1)
  - DRUG INEFFECTIVE [None]
